FAERS Safety Report 10866929 (Version 1)
Quarter: 2015Q1

REPORT INFORMATION
  Report Type: Spontaneous
  Country: FR (occurrence: FR)
  Receive Date: 20150225
  Receipt Date: 20150225
  Transmission Date: 20150721
  Serious: Yes (Disabling)
  Sender: FDA-Public Use
  Company Number: FR-BAYER-2014-172742

PATIENT
  Age: 32 Year
  Sex: Female

DRUGS (1)
  1. JAYDESS [Suspect]
     Active Substance: LEVONORGESTREL
     Dosage: 14 MCG/24HR, CONT
     Route: 015

REACTIONS (4)
  - Asthenia [Recovered/Resolved]
  - Fatigue [Recovered/Resolved]
  - Hypersomnia [Recovered/Resolved]
  - Procedural pain [None]

NARRATIVE: CASE EVENT DATE: 20141013
